FAERS Safety Report 7715581-X (Version None)
Quarter: 2011Q3

REPORT INFORMATION
  Report Type: 
  Country: None (occurrence: None)
  Receive Date: 20110829
  Receipt Date: 20110822
  Transmission Date: 20111222
  Serious: Yes (Hospitalization)
  Sender: FDA-Public Use
  Company Number: JP-ROCHE-793631

PATIENT
  Sex: Female
  Weight: 57 kg

DRUGS (9)
  1. ACTEMRA [Suspect]
     Route: 041
     Dates: start: 20090910, end: 20090910
  2. PREDNISOLONE [Concomitant]
     Route: 048
     Dates: start: 20081015, end: 20090323
  3. ACTEMRA [Suspect]
     Route: 041
     Dates: start: 20110311, end: 20110311
  4. RHEUMATREX [Concomitant]
     Route: 048
     Dates: start: 20051130, end: 20100909
  5. ACTEMRA [Suspect]
     Indication: RHEUMATOID ARTHRITIS
     Route: 041
     Dates: start: 20081030, end: 20090423
  6. ACTEMRA [Suspect]
     Route: 041
     Dates: start: 20090804, end: 20090804
  7. ACTEMRA [Suspect]
     Route: 041
     Dates: start: 20091015, end: 20100101
  8. PREDNISOLONE [Concomitant]
     Route: 048
     Dates: start: 20090324, end: 20090423
  9. ACTEMRA [Suspect]
     Route: 041
     Dates: start: 20090519, end: 20090519

REACTIONS (2)
  - EXTRADURAL HAEMATOMA [None]
  - BILIARY CIRRHOSIS PRIMARY [None]
